APPROVED DRUG PRODUCT: ZYRTEC
Active Ingredient: CETIRIZINE HYDROCHLORIDE
Strength: 5MG/5ML **Federal Register determination that product was not discontinued or withdrawn for safety or effectiveness reasons**
Dosage Form/Route: SOLUTION;ORAL
Application: N020346 | Product #001
Applicant: JOHNSON AND JOHNSON CONSUMER INC MCNEIL CONSUMER HEALTHCARE DIV
Approved: Sep 27, 1996 | RLD: Yes | RS: No | Type: DISCN